FAERS Safety Report 6417263-3 (Version None)
Quarter: 2009Q4

REPORT INFORMATION
  Report Type: 
  Country: None (occurrence: None)
  Receive Date: 20091027
  Receipt Date: 20091027
  Transmission Date: 20100525
  Serious: No
  Sender: FDA-Public Use
  Company Number: None

PATIENT
  Age: 21 Year
  Sex: Female
  Weight: 45.3597 kg

DRUGS (1)
  1. FLUOXETINE [Suspect]
     Indication: DEPRESSION
     Dosage: ONE CAPSULE BY MOUTH DAILY
     Dates: start: 20090929, end: 20091026

REACTIONS (2)
  - DEAFNESS UNILATERAL [None]
  - TINNITUS [None]
